FAERS Safety Report 9157378 (Version 4)
Quarter: 2013Q2

REPORT INFORMATION
  Report Type: Spontaneous
  Country: JP (occurrence: JP)
  Receive Date: 20130312
  Receipt Date: 20130404
  Transmission Date: 20140414
  Serious: Yes (Hospitalization)
  Sender: FDA-Public Use
  Company Number: JP-JNJFOC-20130304525

PATIENT
  Age: 7 Decade
  Sex: 0

DRUGS (2)
  1. TRAMCET [Suspect]
     Indication: ANALGESIC THERAPY
     Dosage: 2 DOSES X 1 PER DAY
     Route: 048
     Dates: start: 201302
  2. TRAMCET [Suspect]
     Indication: ANALGESIC THERAPY
     Dosage: 1 DOSES X 1 PER DAY
     Route: 048
     Dates: start: 20130205

REACTIONS (1)
  - Hospitalisation [Unknown]
